FAERS Safety Report 15856804 (Version 1)
Quarter: 2019Q1

REPORT INFORMATION
  Report Type: Report from Study
  Country: US (occurrence: US)
  Receive Date: 20190123
  Receipt Date: 20190123
  Transmission Date: 20190417
  Serious: No
  Sender: FDA-Public Use
  Company Number: US-ROCHE-2240618

PATIENT
  Age: 40 Year
  Sex: Female
  Weight: 53.57 kg

DRUGS (3)
  1. PROVIGIL [Concomitant]
     Active Substance: MODAFINIL
     Dosage: ONGOING: YES
     Route: 065
  2. OCREVUS [Suspect]
     Active Substance: OCRELIZUMAB
     Indication: RELAPSING MULTIPLE SCLEROSIS
     Dosage: ONGOING:YES
     Route: 065
     Dates: start: 20181228
  3. AMPYRA [Concomitant]
     Active Substance: DALFAMPRIDINE
     Dosage: ONGOING: YES
     Route: 065

REACTIONS (8)
  - Rhinorrhoea [Not Recovered/Not Resolved]
  - Therapeutic response decreased [Unknown]
  - Oropharyngeal pain [Recovered/Resolved]
  - Throat irritation [Unknown]
  - Sneezing [Recovered/Resolved]
  - Ear infection [Unknown]
  - Chest discomfort [Not Recovered/Not Resolved]
  - Upper respiratory tract infection [Recovered/Resolved]

NARRATIVE: CASE EVENT DATE: 20181230
